FAERS Safety Report 10544032 (Version 1)
Quarter: 2014Q4

REPORT INFORMATION
  Report Type: Spontaneous
  Country: FR (occurrence: FR)
  Receive Date: 20141027
  Receipt Date: 20141027
  Transmission Date: 20150529
  Serious: Yes (Hospitalization)
  Sender: FDA-Public Use
  Company Number: FR-SA-2014SA142299

PATIENT
  Age: 46 Year
  Sex: Male

DRUGS (11)
  1. CEFOXITIN [Suspect]
     Active Substance: CEFOXITIN\CEFOXITIN SODIUM
     Indication: LUNG DISORDER
     Route: 042
     Dates: start: 20140829, end: 20140830
  2. EUPRESSYL [Concomitant]
     Active Substance: URAPIDIL
     Dates: start: 20140824, end: 20140825
  3. LOVENOX [Suspect]
     Active Substance: ENOXAPARIN SODIUM
     Route: 058
     Dates: start: 20140822, end: 20140903
  4. ALPRAZOLAM. [Suspect]
     Active Substance: ALPRAZOLAM
     Route: 048
     Dates: start: 20140823, end: 20140903
  5. PARACETAMOL [Concomitant]
     Active Substance: ACETAMINOPHEN
     Dates: start: 20140822, end: 20140825
  6. EUPANTOL [Suspect]
     Active Substance: PANTOPRAZOLE SODIUM
     Route: 065
     Dates: start: 20140822, end: 20140903
  7. LEVOFLOXACIN. [Concomitant]
     Active Substance: LEVOFLOXACIN
     Indication: LUNG DISORDER
     Dates: start: 20140823, end: 20140825
  8. DAFALGAN CODEINE [Concomitant]
     Active Substance: ACETAMINOPHEN\CODEINE PHOSPHATE
     Dates: start: 20140825, end: 20140830
  9. CEFOTAXIME [Suspect]
     Active Substance: CEFOTAXIME\CEFOTAXIME SODIUM
     Indication: LUNG DISORDER
     Route: 042
     Dates: start: 20140823, end: 20140830
  10. FUROSEMIDE. [Concomitant]
     Active Substance: FUROSEMIDE
     Dates: start: 20140825, end: 20140825
  11. TERBUTALINE [Concomitant]
     Active Substance: TERBUTALINE
     Dates: start: 20140822, end: 20140830

REACTIONS (4)
  - Hyperthermia [Unknown]
  - Rash [Recovering/Resolving]
  - Eosinophilia [Not Recovered/Not Resolved]
  - Drug reaction with eosinophilia and systemic symptoms [Unknown]

NARRATIVE: CASE EVENT DATE: 20140830
